FAERS Safety Report 7117323-8 (Version None)
Quarter: 2010Q4

REPORT INFORMATION
  Report Type: 
  Country: None (occurrence: None)
  Receive Date: 20101122
  Receipt Date: 20101115
  Transmission Date: 20110411
  Serious: Yes (Death)
  Sender: FDA-Public Use
  Company Number: VE-PFIZER INC-2010140514

PATIENT
  Age: 51 Year
  Sex: Male

DRUGS (3)
  1. LIPITOR [Suspect]
     Indication: HYPERCHOLESTEROLAEMIA
     Dosage: 80 MG, 1X/DAY
     Route: 048
     Dates: start: 20091208
  2. LASIX [Concomitant]
     Indication: HYPERTENSION
     Dosage: UNK
     Route: 048
  3. DIGOXIN [Concomitant]
     Indication: HYPERTENSION
     Dosage: UNK
     Route: 048

REACTIONS (1)
  - PULMONARY EMBOLISM [None]
